FAERS Safety Report 21826242 (Version 2)
Quarter: 2023Q1

REPORT INFORMATION
  Report Type: Spontaneous
  Country: US (occurrence: US)
  Receive Date: 20230106
  Receipt Date: 20230307
  Transmission Date: 20230417
  Serious: Yes (Other)
  Sender: FDA-Public Use
  Company Number: US-BAYER-2022A176230

PATIENT
  Age: 74 Year
  Sex: Male

DRUGS (1)
  1. EYLEA [Suspect]
     Active Substance: AFLIBERCEPT
     Indication: Product used for unknown indication
     Dosage: UNK SOLUTION FOR INJECTION

REACTIONS (4)
  - Blood creatinine increased [Unknown]
  - Thrombotic microangiopathy [Unknown]
  - Hypertension [Unknown]
  - Focal segmental glomerulosclerosis [Unknown]
